FAERS Safety Report 8319866-8 (Version None)
Quarter: 2012Q2

REPORT INFORMATION
  Report Type: 
  Country: None (occurrence: None)
  Receive Date: 20120427
  Receipt Date: 20120420
  Transmission Date: 20120825
  Serious: Yes (Other)
  Sender: FDA-Public Use
  Company Number: JP-AMGEN-JPNSP2012026246

PATIENT
  Sex: Male

DRUGS (1)
  1. DENOSUMAB [Suspect]

REACTIONS (1)
  - HUMERUS FRACTURE [None]
